FAERS Safety Report 15834395 (Version 1)
Quarter: 2019Q1

REPORT INFORMATION
  Report Type: Spontaneous
  Country: US (occurrence: US)
  Receive Date: 20190116
  Receipt Date: 20190116
  Transmission Date: 20190417
  Serious: No
  Sender: FDA-Public Use
  Company Number: US-BAYER-2019-009968

PATIENT
  Age: 68 Year
  Sex: Male

DRUGS (7)
  1. CYTARABINE. [Concomitant]
     Active Substance: CYTARABINE
  2. GILTERITINIB [Concomitant]
     Active Substance: GILTERITINIB
  3. VORICONAZOLE. [Interacting]
     Active Substance: VORICONAZOLE
  4. AZACITIDINE. [Concomitant]
     Active Substance: AZACITIDINE
  5. SORAFENIB (RAF KINASE INHIBITOR) [Suspect]
     Active Substance: SORAFENIB
     Indication: ACUTE MYELOID LEUKAEMIA
     Dosage: 200 MG, BID
  6. DAUNORUBICIN [Concomitant]
     Active Substance: DAUNORUBICIN
  7. SORAFENIB (RAF KINASE INHIBITOR) [Interacting]
     Active Substance: SORAFENIB
     Indication: ACUTE MYELOID LEUKAEMIA
     Dosage: 200 MG, BID

REACTIONS (4)
  - Off label use [None]
  - Periorbital oedema [Recovered/Resolved]
  - Drug interaction [None]
  - Product use in unapproved indication [None]
